FAERS Safety Report 8747184 (Version 3)
Quarter: 2012Q4

REPORT INFORMATION
  Report Type: 
  Country: US (occurrence: US)
  Receive Date: 20120827
  Receipt Date: 20120927
  Transmission Date: 20130627
  Serious: Yes (Other)
  Sender: FDA-Public Use
  Company Number: US-JNJFOC-20120810783

PATIENT
  Age: 46 Year
  Sex: Female
  Weight: 77.11 kg

DRUGS (1)
  1. LISTERINE ANTISEPTIC [Suspect]
     Indication: DENTAL DISORDER PROPHYLAXIS
     Dosage: Half of a mouthful
     Route: 048
     Dates: start: 20020614, end: 20020614

REACTIONS (5)
  - Loss of consciousness [Unknown]
  - Accidental exposure to product [Recovered/Resolved]
  - Dyspnoea [Recovered/Resolved]
  - Exophthalmos [Recovered/Resolved]
  - Expired drug administered [Unknown]
